FAERS Safety Report 17797656 (Version 1)
Quarter: 2020Q2

REPORT INFORMATION
  Report Type: Spontaneous
  Country: US (occurrence: US)
  Receive Date: 20200515
  Receipt Date: 20200515
  Transmission Date: 20200714
  Serious: Yes (Hospitalization)
  Sender: FDA-Public Use
  Company Number: None

PATIENT
  Age: 81 Year
  Sex: Male
  Weight: 62 kg

DRUGS (1)
  1. GABAPENTIN (GABAPENTIN 100MG CAP, UD) [Suspect]
     Active Substance: GABAPENTIN
     Indication: PAIN
     Dates: start: 20191124, end: 20200123

REACTIONS (4)
  - Sedation [None]
  - Dizziness [None]
  - Delirium [None]
  - Confusional state [None]

NARRATIVE: CASE EVENT DATE: 20200123
